FAERS Safety Report 6648205-3 (Version None)
Quarter: 2010Q1

REPORT INFORMATION
  Report Type: 
  Country: None (occurrence: None)
  Receive Date: 20100324
  Receipt Date: 20100317
  Transmission Date: 20100710
  Serious: Yes (Hospitalization)
  Sender: FDA-Public Use
  Company Number: US-SANOFI-AVENTIS-2010SA006419

PATIENT
  Age: 19 Year
  Sex: Female

DRUGS (2)
  1. LANTUS [Suspect]
     Dosage: AT NIGHT FOR 5 YEARS DOSE:38 UNIT(S)
     Route: 058
     Dates: start: 20050101
  2. OPTICLICK [Suspect]
     Dates: start: 20050101

REACTIONS (1)
  - DIABETIC KETOACIDOSIS [None]
